FAERS Safety Report 10427680 (Version 2)
Quarter: 2015Q1

REPORT INFORMATION
  Report Type: Spontaneous
  Country: JP (occurrence: JP)
  Receive Date: 20140903
  Receipt Date: 20150311
  Transmission Date: 20150720
  Serious: Yes (Other)
  Sender: FDA-Public Use
  Company Number: PHHY2014JP108423

PATIENT
  Sex: Female

DRUGS (2)
  1. VOLTAREN [Suspect]
     Active Substance: DICLOFENAC SODIUM
     Dosage: 25 MG, QD(TWO SUPPOSITORIES )
     Route: 054
  2. VOLTAREN [Suspect]
     Active Substance: DICLOFENAC SODIUM
     Indication: HYPERTHERMIA
     Dosage: 25 MG, UNK
     Route: 054

REACTIONS (4)
  - Pain [Unknown]
  - Premature delivery [Unknown]
  - Depression [Unknown]
  - Maternal exposure during pregnancy [Unknown]

NARRATIVE: CASE EVENT DATE: 19950329
